FAERS Safety Report 4549908-7 (Version None)
Quarter: 2004Q4

REPORT INFORMATION
  Report Type: 
  Country: None (occurrence: None)
  Receive Date: 20041230
  Receipt Date: 20040505
  Transmission Date: 20050328
  Serious: Yes (Other)
  Sender: FDA-Public Use
  Company Number: 04-05-0641

PATIENT
  Age: 20 Year
  Sex: Female

DRUGS (10)
  1. CLOZAPINE [Suspect]
     Indication: BIPOLAR DISORDER
     Dosage: SEE IMAGE
     Route: 048
     Dates: start: 20031201, end: 20040504
  2. CLOZAPINE [Suspect]
     Indication: SCHIZOAFFECTIVE DISORDER
     Dosage: SEE IMAGE
     Route: 048
     Dates: start: 20031201, end: 20040504
  3. TRILEPTAL [Concomitant]
  4. NEURONTIN [Concomitant]
  5. ATIVAN [Concomitant]
  6. LEVOXYL [Concomitant]
  7. CYTOMEL [Concomitant]
  8. OMEGA [Concomitant]
  9. MULTI-VITAMINS [Concomitant]
  10. SEROQUEL [Concomitant]

REACTIONS (1)
  - NEUTROPENIA [None]
